FAERS Safety Report 4448679-2 (Version None)
Quarter: 2004Q3

REPORT INFORMATION
  Report Type: 
  Country: None (occurrence: None)
  Receive Date: 20040909
  Receipt Date: 20040331
  Transmission Date: 20050211
  Serious: Yes (Death, Hospitalization)
  Sender: FDA-Public Use
  Company Number: B01200400607

PATIENT
  Age: 82 Year
  Sex: Female

DRUGS (13)
  1. (CLOPIDOGREL) TABLET 75 MG [Suspect]
     Indication: ISCHAEMIC HEART DISEASE PROPHYLAXIS
     Dosage: 75 MG QD ORAL
     Route: 048
     Dates: start: 20030731, end: 20040218
  2. ACETYLSALICYLIC ACID SRT [Concomitant]
  3. TIAZAC [Concomitant]
  4. ATACIND (CANDESATAN CILEXETIL) [Concomitant]
  5. LASIX (FUROSIMDE) [Concomitant]
  6. EFFEXOR [Concomitant]
  7. ATARAX (HYDROCHLORIDE) [Concomitant]
  8. KOFFEX [Concomitant]
  9. SENEKOT (SENNA FRUIT) [Concomitant]
  10. TRAZODONE [Concomitant]
  11. PANTOLOC (PANTOPRZOLE SODIUM) [Concomitant]
  12. COMBIVENT [Concomitant]
  13. FLOVENT [Concomitant]

REACTIONS (11)
  - BILE DUCT CANCER [None]
  - BILE DUCT STENOSIS [None]
  - CHOLELITHIASIS [None]
  - DILATATION INTRAHEPATIC DUCT ACQUIRED [None]
  - HEPATIC ENZYME INCREASED [None]
  - HEPATIC FAILURE [None]
  - JAUNDICE [None]
  - MASS [None]
  - PANCREATIC CARCINOMA [None]
  - PANCREATIC CYST [None]
  - PRURITUS GENERALISED [None]
